FAERS Safety Report 14718187 (Version 8)
Quarter: 2021Q3

REPORT INFORMATION
  Report Type: Spontaneous
  Country: US (occurrence: US)
  Receive Date: 20180404
  Receipt Date: 20210728
  Transmission Date: 20211014
  Serious: No
  Sender: FDA-Public Use
  Company Number: US-SA-2018SA068170

PATIENT
  Age: 34 Year
  Sex: Female

DRUGS (2)
  1. DUPIXENT [Suspect]
     Active Substance: DUPILUMAB
     Indication: ASTHMA
     Dosage: UNK
     Route: 058
  2. DUPIXENT [Suspect]
     Active Substance: DUPILUMAB
     Indication: DERMATITIS ATOPIC
     Dosage: 600 MG,1X
     Route: 058
     Dates: start: 201801, end: 201801

REACTIONS (8)
  - Malaise [Unknown]
  - Procedural pain [Unknown]
  - Migraine [Not Recovered/Not Resolved]
  - Dermatitis atopic [Unknown]
  - Rash pruritic [Unknown]
  - Spondylitis [Not Recovered/Not Resolved]
  - Anxiety [Unknown]
  - Rash [Unknown]

NARRATIVE: CASE EVENT DATE: 2018
